FAERS Safety Report 8791085 (Version 2)
Quarter: 2012Q4

REPORT INFORMATION
  Report Type: Spontaneous
  Country: JP (occurrence: None)
  Receive Date: 20120911
  Receipt Date: 20120921
  Transmission Date: 20130627
  Serious: Yes (Hospitalization)
  Sender: FDA-Public Use
  Company Number: JP-2012-16175

PATIENT
  Age: 8 Decade
  Sex: Male

DRUGS (3)
  1. PLETAAL [Suspect]
     Route: 048
  2. BAYASPIRIN (ACETYLSALICYLIC ACID) TABLET [Concomitant]
  3. ANPLAG (SARPOGRELATE HYDROCHLORIDE) [Concomitant]

REACTIONS (5)
  - Procedural haemorrhage [None]
  - Cholangitis [None]
  - Bile duct stone [None]
  - Haematochezia [None]
  - Haemoglobin decreased [None]
